FAERS Safety Report 7205568-8 (Version None)
Quarter: 2010Q4

REPORT INFORMATION
  Report Type: 
  Country: None (occurrence: None)
  Receive Date: 20101231
  Receipt Date: 20101223
  Transmission Date: 20110411
  Serious: Yes (Death, Hospitalization)
  Sender: FDA-Public Use
  Company Number: ES-BRISTOL-MYERS SQUIBB COMPANY-15466535

PATIENT
  Age: 53 Year
  Sex: Female

DRUGS (3)
  1. ERBITUX [Suspect]
     Indication: RECTAL CANCER
     Dosage: STRENGTH:2MG/ML
     Route: 065
     Dates: start: 20100723, end: 20101015
  2. OXALIPLATIN [Suspect]
     Indication: RECTAL CANCER
     Dosage: STRENGTH:5MG/ML CONCENTRADO PARA SOLUCION PARA
     Route: 065
     Dates: start: 20100723, end: 20101015
  3. FLUOROURACIL [Suspect]
     Indication: RECTAL CANCER
     Dosage: STRENGTH:50MG/ML 1 VI SOL FLUOROURACIL FERRER FARMA
     Route: 065
     Dates: start: 20100101

REACTIONS (2)
  - NEUTROPENIA [None]
  - SEPSIS [None]
